FAERS Safety Report 12211614 (Version 2)
Quarter: 2016Q2

REPORT INFORMATION
  Report Type: Report from Study
  Country: US (occurrence: US)
  Receive Date: 20160325
  Receipt Date: 20160411
  Transmission Date: 20160815
  Serious: Yes (Other)
  Sender: FDA-Public Use
  Company Number: US-AMGEN-USASL2016036065

PATIENT
  Age: 41 Year
  Sex: Female

DRUGS (1)
  1. ENBREL [Suspect]
     Active Substance: ETANERCEPT
     Indication: ANKYLOSING SPONDYLITIS
     Dosage: UNK
     Route: 065
     Dates: start: 20160315

REACTIONS (6)
  - Haemoptysis [Unknown]
  - Oropharyngeal pain [Unknown]
  - Urticaria [Unknown]
  - Fatigue [Unknown]
  - Pulmonary haemorrhage [Unknown]
  - Cough [Unknown]

NARRATIVE: CASE EVENT DATE: 2016
